FAERS Safety Report 9839603 (Version 4)
Quarter: 2014Q2

REPORT INFORMATION
  Report Type: Spontaneous
  Country: US (occurrence: US)
  Receive Date: 20140124
  Receipt Date: 20140616
  Transmission Date: 20141212
  Serious: No
  Sender: FDA-Public Use
  Company Number: US-009507513-1401USA006766

PATIENT
  Sex: Female
  Weight: 61.22 kg

DRUGS (1)
  1. NEXPLANON [Suspect]
     Indication: CONTRACEPTION
     Dosage: DOSE: 68 MG,ONE ROD / ONCE
     Route: 059
     Dates: start: 20130828, end: 20140108

REACTIONS (1)
  - Maternal exposure during pregnancy [Recovered/Resolved]
